FAERS Safety Report 24935594 (Version 1)
Quarter: 2025Q1

REPORT INFORMATION
  Report Type: Report from Study
  Country: CA (occurrence: CA)
  Receive Date: 20250206
  Receipt Date: 20250206
  Transmission Date: 20250408
  Serious: Yes (Death, Other)
  Sender: EXELIXIS
  Company Number: CA-IPSEN Group, Research and Development-2024-13803

PATIENT
  Age: 50 Year
  Sex: Male

DRUGS (11)
  1. CABOMETYX [Suspect]
     Active Substance: CABOZANTINIB S-MALATE
     Indication: Renal cell carcinoma
     Dosage: 60 MG DAILY, ORAL
     Route: 048
     Dates: start: 20231006
  2. LABETALOL [Concomitant]
     Active Substance: LABETALOL
  3. NORVASC [Concomitant]
     Active Substance: AMLODIPINE BESYLATE
  4. SIROLIMUS [Concomitant]
     Active Substance: SIROLIMUS
  5. MYFORTIC [Concomitant]
     Active Substance: MYCOPHENOLATE SODIUM
  6. INLYTA [Concomitant]
     Active Substance: AXITINIB
  7. PREDNISONE [Concomitant]
     Active Substance: PREDNISONE
  8. CLOZAPINE [Concomitant]
     Active Substance: CLOZAPINE
  9. TYLENOL [Concomitant]
     Active Substance: ACETAMINOPHEN
  10. TYLENOL [Concomitant]
     Active Substance: ACETAMINOPHEN
  11. HYDROMORPHONE [Concomitant]
     Active Substance: HYDROMORPHONE

REACTIONS (1)
  - Malignant neoplasm progression [Fatal]
